FAERS Safety Report 4340473-6 (Version None)
Quarter: 2004Q2

REPORT INFORMATION
  Report Type: 
  Country: None (occurrence: None)
  Receive Date: 20040414
  Receipt Date: 20040406
  Transmission Date: 20050107
  Serious: No
  Sender: FDA-Public Use
  Company Number: 04P-028-0256172-00

PATIENT
  Sex: Female

DRUGS (1)
  1. LIPIDIL [Suspect]
     Dosage: ORAL
     Route: 048
     Dates: start: 19990101

REACTIONS (2)
  - DIFFICULTY IN WALKING [None]
  - MYALGIA [None]
